FAERS Safety Report 7652937-8 (Version None)
Quarter: 2011Q3

REPORT INFORMATION
  Report Type: 
  Country: None (occurrence: None)
  Receive Date: 20110803
  Receipt Date: 20110729
  Transmission Date: 20111222
  Serious: Yes (Death)
  Sender: FDA-Public Use
  Company Number: FR-ROCHE-624920

PATIENT
  Sex: Female
  Weight: 67 kg

DRUGS (2)
  1. RIBAVIRIN [Suspect]
     Route: 048
     Dates: start: 20080314, end: 20081204
  2. PEGINTERFERON ALFA-2A [Suspect]
     Route: 058
     Dates: start: 20080314, end: 20081204

REACTIONS (1)
  - SUDDEN CARDIAC DEATH [None]
